FAERS Safety Report 4782494-5 (Version None)
Quarter: 2005Q3

REPORT INFORMATION
  Report Type: 
  Country: None (occurrence: None)
  Receive Date: 20050929
  Receipt Date: 20050106
  Transmission Date: 20060218
  Serious: No
  Sender: FDA-Public Use
  Company Number: 395856

PATIENT

DRUGS (1)
  1. COREG [Suspect]
     Indication: HYPERTENSION
     Dosage: 18MG TWICE PER DAY
     Route: 048

REACTIONS (2)
  - BLOOD CREATININE INCREASED [None]
  - DRUG INEFFECTIVE [None]
